FAERS Safety Report 21801285 (Version 1)
Quarter: 2022Q4

REPORT INFORMATION
  Report Type: Report from Study
  Country: US (occurrence: US)
  Receive Date: 20221230
  Receipt Date: 20221230
  Transmission Date: 20230113
  Serious: No
  Sender: FDA-Public Use
  Company Number: US-ACORDA-ACO_171854_2022

PATIENT
  Sex: Female

DRUGS (8)
  1. INBRIJA [Suspect]
     Active Substance: LEVODOPA
     Indication: Parkinson^s disease
     Dosage: 2 CAPSULES UP TO 5 TIMES A DAY AS NEEDED, MAX 10 CAPSULES PER 24 HRS FOR 90 DAYS
     Dates: start: 20210119
  2. BIOTIN [Concomitant]
     Active Substance: BIOTIN
     Indication: Product used for unknown indication
     Dosage: 7500 MICROGRAM - TAB
     Route: 065
  3. TYLENOL [Concomitant]
     Active Substance: ACETAMINOPHEN
     Indication: Product used for unknown indication
     Dosage: 500 MILLIGRAM, TAB
     Route: 065
  4. VITAMIN D3 [Concomitant]
     Active Substance: CHOLECALCIFEROL
     Indication: Product used for unknown indication
     Dosage: 400 INTERNATIONAL UNIT
     Route: 065
  5. IBUPROFEN [Concomitant]
     Active Substance: IBUPROFEN
     Indication: Product used for unknown indication
     Dosage: 50/1.25
     Route: 065
  6. CEPHALEXIN [Concomitant]
     Active Substance: CEPHALEXIN
     Indication: Product used for unknown indication
     Dosage: UNKNOWN
     Route: 065
  7. HYDROCORT 1 A PHARMA [Concomitant]
     Indication: Product used for unknown indication
     Dosage: 5 MILLIGRAM, TAB
     Route: 065
  8. QUETIAPINE [Concomitant]
     Active Substance: QUETIAPINE
     Indication: Product used for unknown indication
     Dosage: 200 MILLIGRAM, TAB
     Route: 065

REACTIONS (2)
  - Parkinson^s disease [Not Recovered/Not Resolved]
  - Sputum discoloured [Not Recovered/Not Resolved]
